FAERS Safety Report 9338685 (Version 2)
Quarter: 2013Q3

REPORT INFORMATION
  Report Type: Report from Study
  Country: FR (occurrence: FR)
  Receive Date: 20130610
  Receipt Date: 20130917
  Transmission Date: 20140515
  Serious: Yes (Hospitalization)
  Sender: FDA-Public Use
  Company Number: PHHY2013FR056793

PATIENT
  Age: 76 Year
  Sex: Female

DRUGS (6)
  1. TASIGNA [Suspect]
     Indication: CHRONIC MYELOID LEUKAEMIA
     Dosage: 300 MG, BID
     Route: 048
     Dates: start: 20130429, end: 20130529
  2. PROTELOS [Concomitant]
     Indication: OSTEOPOROSIS
     Dosage: 4 G, UNK
     Dates: start: 2003
  3. CALCIDOSE VITAMINE D [Concomitant]
     Indication: OSTEOPOROSIS
     Dosage: 1000 MG/800 IU
  4. GINKOR FORT [Concomitant]
     Indication: VENOUS INSUFFICIENCY
     Dosage: 120
     Dates: start: 2003
  5. ZYMAD [Concomitant]
     Indication: PROPHYLAXIS
     Dosage: 200000 IU, EVERY 3 MONTHS
     Dates: start: 2003
  6. LANSOPRAZOLE [Concomitant]
     Dosage: 15 MG, UNK

REACTIONS (1)
  - Pruritus generalised [Recovered/Resolved]
